FAERS Safety Report 8511715-8 (Version None)
Quarter: 2012Q3

REPORT INFORMATION
  Report Type: 
  Country: None (occurrence: None)
  Receive Date: 20120716
  Receipt Date: 20120419
  Transmission Date: 20120928
  Serious: Yes (Life-Threatening)
  Sender: FDA-Public Use
  Company Number: CA-ASTRAZENECA-2012SE47061

PATIENT
  Age: 23 Year
  Sex: Female

DRUGS (4)
  1. LIDOCAINE [Suspect]
  2. PROPOFOL [Suspect]
     Indication: ANAESTHESIA
     Route: 042
  3. FENTANYL [Suspect]
  4. ROCURONIUM BROMIDE [Concomitant]
     Dosage: 50 MG

REACTIONS (1)
  - STRESS CARDIOMYOPATHY [None]
